FAERS Safety Report 6286260-3 (Version None)
Quarter: 2009Q3

REPORT INFORMATION
  Report Type: 
  Country: None (occurrence: None)
  Receive Date: 20090728
  Receipt Date: 20090613
  Transmission Date: 20100115
  Serious: Yes (Other)
  Sender: FDA-Public Use
  Company Number: US-PFIZER INC-2009227276

PATIENT
  Sex: Female
  Weight: 52.154 kg

DRUGS (10)
  1. CHANTIX [Suspect]
     Indication: SMOKING CESSATION THERAPY
     Dosage: 0.5 MG, 1X/DAY
     Dates: start: 20090607, end: 20090614
  2. FIORICET [Concomitant]
  3. SINGULAIR [Concomitant]
  4. EFFEXOR [Concomitant]
  5. LYRICA [Concomitant]
  6. TRAZODONE [Concomitant]
  7. RESTORIL [Concomitant]
  8. VALIUM [Concomitant]
  9. DIFLUCAN [Concomitant]
  10. MULTI-VITAMINS [Concomitant]

REACTIONS (2)
  - ASTHMA [None]
  - DEPRESSION [None]
